FAERS Safety Report 9842789 (Version 1)
Quarter: 2014Q1

REPORT INFORMATION
  Report Type: Report from Study
  Country: ES (occurrence: ES)
  Receive Date: 20140124
  Receipt Date: 20140124
  Transmission Date: 20141002
  Serious: Yes (Hospitalization)
  Sender: FDA-Public Use
  Company Number: ES-MERCK-1401ESP006943

PATIENT
  Age: 48 Year
  Sex: Male

DRUGS (10)
  1. RIBAVIRIN [Suspect]
     Indication: CHRONIC HEPATITIS C
     Dosage: 200 MG 5 VECES AL DIA
     Route: 048
     Dates: start: 20130411
  2. PEGINTRON [Suspect]
     Indication: CHRONIC HEPATITIS C
     Dosage: 80 MCRG
     Route: 058
     Dates: start: 20130411
  3. ZEFFIX [Suspect]
     Indication: HEPATITIS B
     Dosage: 100 MG, QD
     Route: 048
     Dates: start: 20121106
  4. CYCLOSPORINE [Suspect]
     Indication: IMMUNOSUPPRESSION
     Dosage: 125MG  Y 100MG CADA 12 HORAS
     Route: 048
     Dates: start: 20121226
  5. FUROSEMIDE [Concomitant]
     Indication: ASCITES
     Dosage: 40MG 1 VEZ AL DIA
     Route: 048
     Dates: start: 20130424
  6. OMEPRAZOLE [Concomitant]
     Indication: PROPHYLAXIS AGAINST GASTROINTESTINAL ULCER
     Dosage: 20 MG 1 VEZ AL DIA
     Route: 048
     Dates: start: 20121104
  7. URSOBILANE [Concomitant]
     Indication: BILIARY CIRRHOSIS
     Dosage: 1 COMP DE 300 MG CADA 8H
     Route: 048
     Dates: start: 20130206
  8. PREDNISONE [Concomitant]
     Dosage: 5MG CADA 72H
     Route: 048
     Dates: start: 20121104
  9. CITALOPRAM [Concomitant]
     Indication: DEPRESSION
     Dosage: 20MG 1 COMP AL DIA
     Route: 048
     Dates: start: 20121104
  10. ALDACTONE TABLETS [Concomitant]
     Indication: PORTAL HYPERTENSION
     Dosage: 50MG AL DIA
     Route: 048
     Dates: start: 20130424, end: 20130522

REACTIONS (2)
  - Thrombocytopenia [Not Recovered/Not Resolved]
  - Anaemia [Not Recovered/Not Resolved]
